FAERS Safety Report 12265957 (Version 1)
Quarter: 2016Q2

REPORT INFORMATION
  Report Type: Spontaneous
  Country: SE (occurrence: SE)
  Receive Date: 20160413
  Receipt Date: 20160413
  Transmission Date: 20160815
  Serious: Yes (Life-Threatening)
  Sender: FDA-Public Use
  Company Number: SE-TEVA-648702ISR

PATIENT
  Age: 62 Year
  Sex: Female

DRUGS (3)
  1. NORMORIX MITE [Suspect]
     Active Substance: AMILORIDE HYDROCHLORIDE\HYDROCHLOROTHIAZIDE
     Indication: HYPERTENSION
     Dosage: 1 DOSAGE FORMS DAILY;
     Route: 048
     Dates: start: 20160224, end: 20160225
  2. LOSARTAN TEVA 50 MG FILMDRAGERAD TABLETT [Suspect]
     Active Substance: LOSARTAN POTASSIUM
     Indication: HYPERTENSION
     Dosage: 25 MILLIGRAM DAILY; 0.5 TABL
     Route: 048
     Dates: start: 20160205, end: 20160223
  3. SALURES 2,5 MG TABLETT [Suspect]
     Active Substance: BENDROFLUMETHIAZIDE
     Indication: HYPERTENSION
     Dosage: 2.5 MILLIGRAM DAILY;
     Route: 048
     Dates: start: 20160226, end: 20160227

REACTIONS (6)
  - Nervousness [Recovered/Resolved]
  - Throat tightness [Recovered/Resolved]
  - Anxiety [Recovered/Resolved]
  - Mental disorder [Recovered/Resolved]
  - Hypersensitivity [Recovered/Resolved]
  - Crying [None]

NARRATIVE: CASE EVENT DATE: 201602
